FAERS Safety Report 8034377-5 (Version None)
Quarter: 2012Q1

REPORT INFORMATION
  Report Type: 
  Country: None (occurrence: None)
  Receive Date: 20120110
  Receipt Date: 20120107
  Transmission Date: 20120608
  Serious: Yes (Death, Other)
  Sender: FDA-Public Use
  Company Number: FR-ASTRAZENECA-2012SE01421

PATIENT
  Age: 63 Year
  Sex: Female

DRUGS (6)
  1. SYMBICORT [Suspect]
     Dosage: 160/4.5 UG PER DOSE, TWO INHALATIONS EACH MORNING AND ONE INHALATION EACH EVENING
     Route: 055
     Dates: start: 20110527
  2. VENTOLIN [Concomitant]
  3. EBASTINE [Concomitant]
  4. NASACORT [Concomitant]
  5. PREDNISONE TAB [Suspect]
     Indication: RESPIRATORY DISORDER
     Dates: start: 20120107
  6. DESLORATADINE [Concomitant]

REACTIONS (2)
  - CARDIAC ARREST [None]
  - RESPIRATORY DISORDER [None]
